FAERS Safety Report 20097875 (Version 2)
Quarter: 2021Q4

REPORT INFORMATION
  Report Type: Report from Study
  Country: FR (occurrence: FR)
  Receive Date: 20211122
  Receipt Date: 20211126
  Transmission Date: 20220303
  Serious: Yes (Other)
  Sender: FDA-Public Use
  Company Number: FR-NOVARTISPH-NVSC2021FR263510

PATIENT
  Age: 63 Year

DRUGS (2)
  1. LUTETIUM OXODOTREOTIDE LU-177 [Suspect]
     Active Substance: LUTETIUM OXODOTREOTIDE LU-177
     Indication: Paraganglion neoplasm malignant
     Dosage: UNK
     Route: 065
     Dates: start: 20210728
  2. LUTETIUM OXODOTREOTIDE LU-177 [Suspect]
     Active Substance: LUTETIUM OXODOTREOTIDE LU-177
     Dosage: UNK
     Route: 065
     Dates: start: 20210923

REACTIONS (2)
  - Paraganglion neoplasm malignant [Unknown]
  - Malignant neoplasm progression [Unknown]
